FAERS Safety Report 21131397 (Version 1)
Quarter: 2022Q3

REPORT INFORMATION
  Report Type: Spontaneous
  Country: US (occurrence: None)
  Receive Date: 20220725
  Receipt Date: 20220725
  Transmission Date: 20221026
  Serious: Yes (unspecified)
  Sender: FDA-Public Use
  Company Number: None

PATIENT
  Age: 31 Year
  Sex: Male
  Weight: 78 kg

DRUGS (1)
  1. BIKTARVY [Suspect]
     Active Substance: BICTEGRAVIR SODIUM\EMTRICITABINE\TENOFOVIR ALAFENAMIDE FUMARATE
     Indication: HIV infection
     Dosage: FREQUENCY : DAILY;?
     Route: 048
     Dates: start: 20220422, end: 20220725

REACTIONS (9)
  - Product dispensing error [None]
  - Wrong dosage form [None]
  - Device computer issue [None]
  - Product dosage form issue [None]
  - Product communication issue [None]
  - Incorrect product dosage form administered [None]
  - Product dispensing error [None]
  - Device programming error [None]
  - Drug monitoring procedure not performed [None]

NARRATIVE: CASE EVENT DATE: 20220725
